FAERS Safety Report 14569293 (Version 1)
Quarter: 2018Q1

REPORT INFORMATION
  Report Type: Spontaneous
  Country: US (occurrence: US)
  Receive Date: 20180223
  Receipt Date: 20180223
  Transmission Date: 20180509
  Serious: Yes (Life-Threatening, Hospitalization, Disabling, Other)
  Sender: FDA-Public Use
  Company Number: None

PATIENT
  Sex: Female
  Weight: 44 kg

DRUGS (2)
  1. MIRENA [Suspect]
     Active Substance: LEVONORGESTREL
     Dates: start: 20141014, end: 20170314
  2. FOLFURI CHEMO [Concomitant]

REACTIONS (2)
  - Colon cancer [None]
  - Abdominal pain upper [None]

NARRATIVE: CASE EVENT DATE: 20160312
